FAERS Safety Report 25709673 (Version 2)
Quarter: 2025Q4

REPORT INFORMATION
  Report Type: Spontaneous
  Country: EU (occurrence: EU)
  Receive Date: 20250821
  Receipt Date: 20251006
  Transmission Date: 20260117
  Serious: Yes (Hospitalization)
  Sender: NOVARTIS
  Company Number: None

PATIENT
  Age: 27 Year
  Sex: Female

DRUGS (2)
  1. TEGRETOL [Suspect]
     Active Substance: CARBAMAZEPINE
     Indication: Headache
     Dosage: 200 MG, QD (200MG/JOUR EN LIB?RATION PROLONG?E) (COMPRIM? PELLICUL? S?CABLE ? LIB?RATION PROLONG?E)
     Route: 048
     Dates: start: 20250618, end: 20250623
  2. TEGRETOL [Suspect]
     Active Substance: CARBAMAZEPINE
     Dosage: 400 MG, QD (400MG/JOUR EN LIB?RATION PROLONG?E)
     Route: 048
     Dates: start: 20250624, end: 20250628

REACTIONS (1)
  - Drug reaction with eosinophilia and systemic symptoms [Not Recovered/Not Resolved]

NARRATIVE: CASE EVENT DATE: 20250626
